FAERS Safety Report 4962828-9 (Version None)
Quarter: 2006Q1

REPORT INFORMATION
  Report Type: 
  Country: None (occurrence: None)
  Receive Date: 20060331
  Receipt Date: 20050427
  Transmission Date: 20060701
  Serious: Yes (Other)
  Sender: FDA-Public Use
  Company Number: 8010367

PATIENT
  Age: 7 Year
  Sex: Female

DRUGS (6)
  1. KEPPRA [Suspect]
     Indication: CONVULSION
     Dosage: 125 MG/D PO
     Route: 048
     Dates: start: 20050214, end: 20050226
  2. KEPPRA [Suspect]
     Indication: CONVULSION
     Dosage: 250 MG/D PO
     Route: 048
     Dates: start: 20050227, end: 20050314
  3. KEPPRA [Suspect]
     Indication: CONVULSION
     Dosage: 375 MG/D PO
     Route: 048
     Dates: start: 20050315, end: 20050320
  4. KEPPRA [Suspect]
     Indication: CONVULSION
     Dosage: 500 MG/D PO
     Route: 048
     Dates: start: 20050321, end: 20050408
  5. KEPPRA [Suspect]
     Indication: CONVULSION
     Dosage: 375 MG/D PO
     Route: 048
     Dates: start: 20050409, end: 20050409
  6. LUMINALETEN [Concomitant]

REACTIONS (3)
  - ALANINE AMINOTRANSFERASE INCREASED [None]
  - ASPARTATE AMINOTRANSFERASE INCREASED [None]
  - GAMMA-GLUTAMYLTRANSFERASE INCREASED [None]
